FAERS Safety Report 8051873-5 (Version None)
Quarter: 2012Q1

REPORT INFORMATION
  Report Type: 
  Country: None (occurrence: None)
  Receive Date: 20120118
  Receipt Date: 20120109
  Transmission Date: 20120608
  Serious: Yes (Hospitalization)
  Sender: FDA-Public Use
  Company Number: PT-PAR PHARMACEUTICAL, INC-2011SCPR003467

PATIENT

DRUGS (6)
  1. TRAMADOL HCL [Concomitant]
     Indication: PRODUCT USED FOR UNKNOWN INDICATION
     Dosage: UNK, UNKNOWN
     Route: 065
  2. IBUPROFEN [Suspect]
     Indication: STILL'S DISEASE ADULT ONSET
     Dosage: UNK, UNKNOWN
     Route: 065
  3. DOXYCYCLINE [Concomitant]
     Indication: PRODUCT USED FOR UNKNOWN INDICATION
     Dosage: UNK, UNKNOWN
     Route: 065
  4. CEFTRIAXONE [Concomitant]
     Indication: PRODUCT USED FOR UNKNOWN INDICATION
     Dosage: UNK, UNKNOWN
     Route: 065
  5. PREDNISOLONE [Concomitant]
     Dosage: 1 MG/KG, / DAY
  6. PREDNISOLONE [Concomitant]
     Indication: STILL'S DISEASE ADULT ONSET
     Dosage: 0.8 MG/KG, / DAY
     Route: 065

REACTIONS (1)
  - HEPATITIS [None]
